FAERS Safety Report 25629166 (Version 1)
Quarter: 2025Q3

REPORT INFORMATION
  Report Type: Spontaneous
  Country: US (occurrence: US)
  Receive Date: 20250731
  Receipt Date: 20250731
  Transmission Date: 20251020
  Serious: No
  Sender: SANOFI AVENTIS
  Company Number: US-SA-2025SA221563

PATIENT
  Age: 61 Year
  Sex: Female

DRUGS (2)
  1. DUPIXENT [Suspect]
     Active Substance: DUPILUMAB
     Indication: Eosinophilic oesophagitis
     Dosage: 300 MG, QW
     Route: 058
     Dates: start: 202501, end: 2025
  2. DUPIXENT [Suspect]
     Active Substance: DUPILUMAB
     Dosage: 300 MG, QW
     Route: 058
     Dates: start: 20250529

REACTIONS (7)
  - Scar [Not Recovered/Not Resolved]
  - Facial pain [Recovered/Resolved]
  - Ear infection [Unknown]
  - Headache [Recovered/Resolved]
  - Sinusitis [Unknown]
  - Back pain [Unknown]
  - Oral herpes [Recovered/Resolved]

NARRATIVE: CASE EVENT DATE: 20250101
